FAERS Safety Report 13881076 (Version 1)
Quarter: 2017Q3

REPORT INFORMATION
  Report Type: Spontaneous
  Country: IN (occurrence: IN)
  Receive Date: 20170818
  Receipt Date: 20170818
  Transmission Date: 20171127
  Serious: Yes (Life-Threatening, Hospitalization, Other)
  Sender: FDA-Public Use
  Company Number: IN-MYLANLABS-2017M1050723

PATIENT

DRUGS (6)
  1. ROCURONIUM [Suspect]
     Active Substance: ROCURONIUM BROMIDE
     Indication: INDUCTION OF ANAESTHESIA
     Dosage: 1 MG/KG
     Route: 065
  2. PROPOFOL. [Concomitant]
     Active Substance: PROPOFOL
     Indication: ENDOTRACHEAL INTUBATION
     Dosage: 2 MG/KG
     Route: 042
  3. PROPOFOL. [Concomitant]
     Active Substance: PROPOFOL
     Indication: INDUCTION OF ANAESTHESIA
     Dosage: 2 MG/KG
     Route: 042
  4. FENTANYL. [Concomitant]
     Active Substance: FENTANYL
     Indication: INDUCTION OF ANAESTHESIA
     Dosage: 2 MICROG/KG
     Route: 065
  5. ROCURONIUM [Suspect]
     Active Substance: ROCURONIUM BROMIDE
     Indication: ENDOTRACHEAL INTUBATION
     Dosage: 1 MG/KG
     Route: 065
  6. FENTANYL. [Concomitant]
     Active Substance: FENTANYL
     Indication: ENDOTRACHEAL INTUBATION
     Dosage: 2 MICROG/KG
     Route: 065

REACTIONS (2)
  - Kounis syndrome [Unknown]
  - Anaphylactic reaction [Unknown]
